FAERS Safety Report 18877350 (Version 1)
Quarter: 2021Q1

REPORT INFORMATION
  Report Type: Spontaneous
  Country: US (occurrence: US)
  Receive Date: 20210211
  Receipt Date: 20210211
  Transmission Date: 20210420
  Serious: Yes (Other)
  Sender: FDA-Public Use
  Company Number: US-TEVA-2021-US-1869307

PATIENT
  Sex: Male

DRUGS (10)
  1. HYDROCHLOROTHIAZIDE ORAL TABLET 25MG [Concomitant]
     Indication: HYPERTENSION
     Dosage: 25 MILLIGRAM DAILY; EVERY MORNING
     Route: 048
  2. AUSTEDO [Suspect]
     Active Substance: DEUTETRABENAZINE
     Indication: TARDIVE DYSKINESIA
     Dosage: 12 MILLIGRAM DAILY;
     Route: 048
  3. MIRTAZAPINE ORAL TABLET 30MG [Concomitant]
     Indication: INSOMNIA
     Dosage: 30 MILLIGRAM DAILY; AT BEDTIME
     Route: 048
  4. CARVEDILOL ORAL TABLET 12.5MG [Concomitant]
     Indication: HYPERTENSION
     Dosage: 25 MILLIGRAM DAILY;
     Route: 048
  5. ZIPRASIDONE HCL ORAL CAPUSLE 40MG [Concomitant]
     Indication: AFFECTIVE DISORDER
     Dosage: 80 MILLIGRAM DAILY;
     Route: 048
  6. LOSARTAN POTASSIUM ORAL TABLET 100MG [Concomitant]
     Indication: HYPERTENSION
     Dosage: 100 MILLIGRAM DAILY;
     Route: 048
  7. INVEGA SUSTENNA INTRAMUSCULAR SUSPENSION PREFILLED SYRINGE 234MG/1.5ML [Concomitant]
     Route: 030
  8. AMLODIPINE BESYLATE ORAL TABLET 10MG [Concomitant]
     Indication: HYPERTENSION
     Dosage: 10 MILLIGRAM DAILY;
     Route: 048
  9. BENZTROPINE MESYLATE ORAL TABLET 1MG [Concomitant]
     Indication: TARDIVE DYSKINESIA
     Dosage: 2 MILLIGRAM DAILY;
     Route: 048
  10. VITAMIN D (ERGOCALCIFEROL) ORAL CAPSULE 1.25MG (5000UT) [Concomitant]
     Route: 048

REACTIONS (2)
  - Chest discomfort [Unknown]
  - Cardiac flutter [Unknown]
